FAERS Safety Report 6939034-1 (Version None)
Quarter: 2010Q3

REPORT INFORMATION
  Report Type: 
  Country: None (occurrence: None)
  Receive Date: 20100824
  Receipt Date: 20100729
  Transmission Date: 20110219
  Serious: Yes (Hospitalization, Other)
  Sender: FDA-Public Use
  Company Number: US-BAYER-201018552BCC

PATIENT
  Age: 79 Year
  Sex: Male

DRUGS (3)
  1. ASPIRIN [Suspect]
     Indication: STENT PLACEMENT
     Route: 065
     Dates: start: 20100101
  2. PLAVIX [Suspect]
     Indication: STENT PLACEMENT
     Dosage: TOTAL DAILY DOSE: 75 MG  UNIT DOSE: 75 MG
     Route: 048
     Dates: start: 20100101, end: 20100501
  3. PLAVIX [Suspect]
     Dosage: TOTAL DAILY DOSE: 75 MG  UNIT DOSE: 75 MG
     Route: 048
     Dates: start: 20100501

REACTIONS (2)
  - ARTERIAL STENOSIS [None]
  - PULMONARY OEDEMA [None]
